FAERS Safety Report 20775790 (Version 2)
Quarter: 2022Q3

REPORT INFORMATION
  Report Type: Spontaneous
  Country: US (occurrence: US)
  Receive Date: 20220502
  Receipt Date: 20220912
  Transmission Date: 20221027
  Serious: Yes (Hospitalization, Other)
  Sender: FDA-Public Use
  Company Number: US-SPECGX-T202200634

PATIENT
  Age: 3 Year
  Sex: Female
  Weight: 14 kg

DRUGS (11)
  1. HYDROMORPHONE [Suspect]
     Active Substance: HYDROMORPHONE
     Indication: Product used for unknown indication
     Dosage: UNK
     Route: 065
  2. DIHYDROCODEINE [Suspect]
     Active Substance: DIHYDROCODEINE
     Indication: Product used for unknown indication
     Dosage: UNK
     Route: 065
  3. HYDROCODONE [Suspect]
     Active Substance: HYDROCODONE
     Indication: Product used for unknown indication
     Dosage: UNK
     Route: 065
  4. FENTANYL [Suspect]
     Active Substance: FENTANYL
     Indication: Sedation
     Dosage: 100 MCG
     Route: 065
  5. FENTANYL [Suspect]
     Active Substance: FENTANYL
     Indication: Analgesic therapy
     Dosage: 0.5 MCG/KG, 7 MG, 1:07 PM (DAY 0)
     Route: 040
  6. FENTANYL [Suspect]
     Active Substance: FENTANYL
     Dosage: 1 MCG/KG, 15 MG, 11:10 AM (DAY 1)
     Route: 040
  7. FENTANYL [Suspect]
     Active Substance: FENTANYL
     Dosage: 2 MCG/KG/H, STARTED DAY 1 AT 12:30AM
     Route: 041
  8. NALOXONE [Suspect]
     Active Substance: NALOXONE
     Indication: Product used for unknown indication
     Dosage: UNK, (TWO DOSES)
     Route: 065
  9. MIDAZOLAM [Suspect]
     Active Substance: MIDAZOLAM
     Indication: Sedation
     Dosage: 5 MILLIGRAM
     Route: 065
  10. MIDAZOLAM [Suspect]
     Active Substance: MIDAZOLAM
     Indication: Agitation
     Dosage: 1 MG/H, STARTED DAY 1 AT 3:45 PM (AS NEEDED)
     Route: 041
  11. MIDAZOLAM [Suspect]
     Active Substance: MIDAZOLAM
     Dosage: 1.5 MG/H, STARTED DAY 3 AT 6:00 PM
     Route: 041

REACTIONS (8)
  - Brain oedema [Recovered/Resolved]
  - Toxic leukoencephalopathy [Recovered/Resolved]
  - Brain herniation [Recovered/Resolved]
  - Bradycardia [Recovering/Resolving]
  - Fine motor delay [Recovering/Resolving]
  - Gross motor delay [Recovering/Resolving]
  - Hypertension [Recovered/Resolved]
  - Accidental exposure to product by child [Unknown]
